FAERS Safety Report 6723391-5 (Version None)
Quarter: 2010Q2

REPORT INFORMATION
  Report Type: 
  Country: None (occurrence: None)
  Receive Date: 20100513
  Receipt Date: 20090819
  Transmission Date: 20101027
  Serious: No
  Sender: FDA-Public Use
  Company Number: US-ABBOTT-09P-163-0593526-00

PATIENT
  Sex: Female
  Weight: 64.468 kg

DRUGS (1)
  1. GENGRAF [Suspect]
     Indication: PROPHYLAXIS AGAINST TRANSPLANT REJECTION
     Dosage: DAILY
     Dates: start: 20090718

REACTIONS (1)
  - ALOPECIA [None]
